FAERS Safety Report 18046764 (Version 2)
Quarter: 2020Q3

REPORT INFORMATION
  Report Type: Spontaneous
  Country: DE (occurrence: DE)
  Receive Date: 20200720
  Receipt Date: 20200918
  Transmission Date: 20201103
  Serious: No
  Sender: FDA-Public Use
  Company Number: DE-TOLMAR, INC.-20DE021950

PATIENT
  Age: 82 Year
  Sex: Male
  Weight: 73 kg

DRUGS (1)
  1. ELIGARD [Suspect]
     Active Substance: LEUPROLIDE ACETATE
     Indication: PROSTATE CANCER METASTATIC
     Dosage: 22.5 MG, Q 3 MONTH
     Route: 065

REACTIONS (3)
  - Device leakage [None]
  - Intercepted product preparation error [None]
  - Syringe issue [None]

NARRATIVE: CASE EVENT DATE: 20200630
